FAERS Safety Report 23638189 (Version 2)
Quarter: 2024Q1

REPORT INFORMATION
  Report Type: Spontaneous
  Country: US (occurrence: US)
  Receive Date: 20240315
  Receipt Date: 20240319
  Transmission Date: 20240409
  Serious: Yes (Hospitalization)
  Sender: FDA-Public Use
  Company Number: US-JNJFOC-20240319904

PATIENT
  Age: 74 Year
  Sex: Female
  Weight: 94.886 kg

DRUGS (15)
  1. XARELTO [Suspect]
     Active Substance: RIVAROXABAN
     Indication: Embolism
     Route: 048
     Dates: start: 20230424
  2. FULVESTRANT [Suspect]
     Active Substance: FULVESTRANT
     Indication: Breast cancer metastatic
     Route: 030
     Dates: start: 20230329
  3. VITAMIN B12 [Concomitant]
     Active Substance: CYANOCOBALAMIN
     Dates: start: 20230802
  4. MAGNESIUM OXIDE [Concomitant]
     Active Substance: MAGNESIUM OXIDE
     Dates: start: 20230927
  5. ASPERCREME WITH LIDOCAINE [LIDOCAINE HYDROCHLORIDE] [Concomitant]
     Dates: start: 20231011
  6. KLONOPIN [Concomitant]
     Active Substance: CLONAZEPAM
     Dates: start: 20231025
  7. CLINDAMYCIN [Concomitant]
     Active Substance: CLINDAMYCIN
     Indication: Antibiotic prophylaxis
  8. KEFLEX [Concomitant]
     Active Substance: CEPHALEXIN
     Indication: Antibiotic prophylaxis
  9. ZESTRIL [Concomitant]
     Active Substance: LISINOPRIL
     Dates: start: 20210910
  10. MINERALS\VITAMINS [Concomitant]
     Active Substance: MINERALS\VITAMINS
     Dates: start: 20220125
  11. PERCOCET [Concomitant]
     Active Substance: ACETAMINOPHEN\OXYCODONE HYDROCHLORIDE
     Dates: start: 20210804
  12. CRESTOR [Concomitant]
     Active Substance: ROSUVASTATIN CALCIUM
     Dates: start: 20230320
  13. MINERALS\VITAMINS [Concomitant]
     Active Substance: MINERALS\VITAMINS
     Dates: start: 20220125
  14. FARICIMAB SVOA [Concomitant]
     Dates: start: 202211
  15. DRISDOL [Concomitant]
     Active Substance: ERGOCALCIFEROL
     Dates: start: 20210924

REACTIONS (2)
  - Anaemia [Recovered/Resolved]
  - Epistaxis [Recovered/Resolved]

NARRATIVE: CASE EVENT DATE: 20231215
